FAERS Safety Report 9431972 (Version 1)
Quarter: 2013Q3

REPORT INFORMATION
  Report Type: Spontaneous
  Country: US (occurrence: US)
  Receive Date: 20130731
  Receipt Date: 20130731
  Transmission Date: 20140515
  Serious: Yes (Other)
  Sender: FDA-Public Use
  Company Number: US-BRISTOL-MYERS SQUIBB COMPANY-19146026

PATIENT
  Age: 19 Year
  Sex: Female

DRUGS (3)
  1. ABILIFY [Suspect]
     Indication: AFFECTIVE DISORDER
  2. CYMBALTA [Concomitant]
  3. AMBIEN [Concomitant]
     Dosage: QUARTER OF A TABLET

REACTIONS (1)
  - Antiphospholipid antibodies positive [Unknown]
